FAERS Safety Report 4729250-1 (Version None)
Quarter: 2005Q3

REPORT INFORMATION
  Report Type: 
  Country: None (occurrence: None)
  Receive Date: 20050729
  Receipt Date: 20040813
  Transmission Date: 20060218
  Serious: No
  Sender: FDA-Public Use
  Company Number: US-GLAXOSMITHKLINE-A0522124A

PATIENT
  Age: 65 Year
  Sex: Female

DRUGS (4)
  1. IMITREX [Suspect]
     Indication: DRUG USE FOR UNKNOWN INDICATION
     Dosage: 100MG VARIABLE DOSE
     Route: 048
     Dates: start: 20040813
  2. IBUPROFEN [Concomitant]
  3. ESTROGEN [Concomitant]
  4. CLARITIN [Concomitant]

REACTIONS (2)
  - DIZZINESS [None]
  - FATIGUE [None]
